FAERS Safety Report 6035343-1 (Version None)
Quarter: 2009Q1

REPORT INFORMATION
  Report Type: 
  Country: None (occurrence: None)
  Receive Date: 20090108
  Receipt Date: 20090108
  Transmission Date: 20090719
  Serious: No
  Sender: FDA-Public Use
  Company Number: None

PATIENT
  Age: 1 Month
  Sex: Female
  Weight: 4.0824 kg

DRUGS (1)
  1. METOCLOPRAMIDE HCL [Suspect]
     Indication: GASTROOESOPHAGEAL REFLUX DISEASE
     Dosage: 0.4 ML 3 TIMES A DAY PO
     Route: 048
     Dates: start: 20081227, end: 20081227

REACTIONS (7)
  - DYSKINESIA [None]
  - EYE MOVEMENT DISORDER [None]
  - FEELING JITTERY [None]
  - HALLUCINATION [None]
  - IRRITABILITY [None]
  - RESTLESSNESS [None]
  - TREMOR [None]
